FAERS Safety Report 24541173 (Version 7)
Quarter: 2025Q2

REPORT INFORMATION
  Report Type: Report from Study
  Country: US (occurrence: US)
  Receive Date: 20241023
  Receipt Date: 20250630
  Transmission Date: 20250717
  Serious: Yes (Hospitalization)
  Sender: TAKEDA
  Company Number: US-TAKEDA-2024TUS105249

PATIENT
  Sex: Male

DRUGS (2)
  1. MARIBAVIR [Suspect]
     Active Substance: MARIBAVIR
     Indication: Cytomegalovirus infection
     Dosage: 400 MILLIGRAM, BID
     Dates: start: 20240926
  2. VALGANCICLOVIR [Suspect]
     Active Substance: VALGANCICLOVIR
     Indication: Product used for unknown indication

REACTIONS (9)
  - Dizziness [Unknown]
  - Tremor [Unknown]
  - Platelet count decreased [Unknown]
  - Incorrect dose administered [Recovered/Resolved]
  - White blood cell count abnormal [Unknown]
  - Cytomegalovirus infection [Unknown]
  - Product dose omission in error [Unknown]
  - Fatigue [Unknown]
  - Dysgeusia [Unknown]
